FAERS Safety Report 6308810-0 (Version None)
Quarter: 2009Q3

REPORT INFORMATION
  Report Type: 
  Country: None (occurrence: None)
  Receive Date: 20090813
  Receipt Date: 20080924
  Transmission Date: 20100115
  Serious: No
  Sender: FDA-Public Use
  Company Number: US-ALLERGAN-0811714US

PATIENT
  Age: 80 Year
  Sex: Female

DRUGS (6)
  1. COMBIGAN [Suspect]
     Indication: GLAUCOMA
     Dosage: 1 GTT, BID
     Route: 047
  2. XALATAN [Concomitant]
     Indication: GLAUCOMA
  3. NORVASC [Concomitant]
  4. MONOPRIL [Concomitant]
  5. XANAX [Concomitant]
  6. MINOCYCLINE [Concomitant]

REACTIONS (3)
  - BLOOD PRESSURE INCREASED [None]
  - RESPIRATORY TRACT CONGESTION [None]
  - VOMITING [None]
